FAERS Safety Report 9679574 (Version 1)
Quarter: 2013Q4

REPORT INFORMATION
  Report Type: Spontaneous
  Country: US (occurrence: US)
  Receive Date: 20131109
  Receipt Date: 20131109
  Transmission Date: 20140711
  Serious: No
  Sender: FDA-Public Use
  Company Number: US-SA-2013SA098518

PATIENT
  Sex: Female

DRUGS (4)
  1. ALLEGRA-D [Suspect]
     Indication: HYPERSENSITIVITY
     Dosage: DOSE -- 180 MG / 240 MG
  2. ALLEGRA-D [Suspect]
     Indication: SINUS DISORDER
     Dosage: DOSE -- 180 MG / 240 MG
  3. CLARITIN-D [Concomitant]
  4. FLONASE [Concomitant]

REACTIONS (1)
  - Insomnia [Unknown]
